FAERS Safety Report 4751354-8 (Version None)
Quarter: 2005Q3

REPORT INFORMATION
  Report Type: 
  Country: None (occurrence: None)
  Receive Date: 20050823
  Receipt Date: 20050823
  Transmission Date: 20060218
  Serious: Yes (Death)
  Sender: FDA-Public Use
  Company Number: None

PATIENT
  Sex: Female
  Weight: 54.2 kg

DRUGS (2)
  1. GLIADEL [Suspect]
     Indication: GLIOBLASTOMA MULTIFORME
     Dosage: 7.7 MG PER WAFER - MAX OF 8
     Dates: start: 20050609
  2. 06-BENZYLGUANINE (06BG) [Suspect]
     Indication: GLIOBLASTOMA MULTIFORME
     Dosage: 30 MG/M2 INFUSION X 5 DAYS
     Route: 050
     Dates: start: 20050609, end: 20050614

REACTIONS (3)
  - BACK PAIN [None]
  - DISEASE PROGRESSION [None]
  - METASTASES TO SPINE [None]
